FAERS Safety Report 8135478-3 (Version None)
Quarter: 2012Q1

REPORT INFORMATION
  Report Type: 
  Country: None (occurrence: None)
  Receive Date: 20120214
  Receipt Date: 20120207
  Transmission Date: 20120608
  Serious: Yes (Hospitalization)
  Sender: FDA-Public Use
  Company Number: US-BAYER-2012-013803

PATIENT
  Age: 25 Year
  Sex: Female
  Weight: 60.317 kg

DRUGS (3)
  1. YASMIN [Suspect]
  2. YAZ [Suspect]
     Indication: ACNE
  3. YAZ [Suspect]
     Indication: CONTRACEPTION
     Dosage: UNK
     Dates: start: 20060801, end: 20070101

REACTIONS (4)
  - SUPERIOR SAGITTAL SINUS THROMBOSIS [None]
  - MIGRAINE [None]
  - VOMITING [None]
  - CEREBRAL THROMBOSIS [None]
